FAERS Safety Report 21091107 (Version 1)
Quarter: 2022Q3

REPORT INFORMATION
  Report Type: Report from Study
  Country: CL (occurrence: CL)
  Receive Date: 20220716
  Receipt Date: 20220716
  Transmission Date: 20221026
  Serious: Yes (Other)
  Sender: FDA-Public Use
  Company Number: CL-NOVARTISPH-NVSC2022CL044537

PATIENT
  Age: 59 Year
  Sex: Female

DRUGS (1)
  1. COSENTYX [Suspect]
     Active Substance: SECUKINUMAB
     Indication: Psoriatic arthropathy
     Dosage: 150 MG, QW
     Route: 058
     Dates: start: 20220209, end: 20220209

REACTIONS (11)
  - Breast cancer [Unknown]
  - Lung disorder [Unknown]
  - Abdominal discomfort [Unknown]
  - Oral discomfort [Unknown]
  - Swollen tongue [Unknown]
  - Pyrexia [Unknown]
  - Tongue discolouration [Unknown]
  - Dyspepsia [Unknown]
  - Malaise [Unknown]
  - Dyspnoea [Unknown]
  - Hypersensitivity [Unknown]

NARRATIVE: CASE EVENT DATE: 20220209
